FAERS Safety Report 4625867-3 (Version None)
Quarter: 2005Q1

REPORT INFORMATION
  Report Type: 
  Country: None (occurrence: None)
  Receive Date: 20050330
  Receipt Date: 20050322
  Transmission Date: 20050727
  Serious: Yes (Other)
  Sender: FDA-Public Use
  Company Number: 200510235BVD

PATIENT
  Age: 35 Year
  Sex: Male
  Weight: 70 kg

DRUGS (1)
  1. AVELOX [Suspect]
     Indication: PNEUMONIA
     Dosage: 400 MG, QD, ORAL
     Route: 048
     Dates: start: 20041218, end: 20041219

REACTIONS (5)
  - DEAFNESS [None]
  - HYPERHIDROSIS [None]
  - NAUSEA [None]
  - TINNITUS [None]
  - VERTIGO [None]
